FAERS Safety Report 19125126 (Version 2)
Quarter: 2021Q2

REPORT INFORMATION
  Report Type: Spontaneous
  Country: GB (occurrence: GB)
  Receive Date: 20210413
  Receipt Date: 20210430
  Transmission Date: 20210717
  Serious: Yes (Other)
  Sender: FDA-Public Use
  Company Number: GB-ADVANZ PHARMA-202104002706

PATIENT

DRUGS (6)
  1. AMIKACIN. [Concomitant]
     Active Substance: AMIKACIN
     Indication: NECROTISING COLITIS
  2. METRONIDAZOLE. [Concomitant]
     Active Substance: METRONIDAZOLE
     Indication: NECROTISING COLITIS
     Dosage: UNK
  3. PREDNISOLONE. [Suspect]
     Active Substance: PREDNISOLONE
     Indication: EOSINOPHILIC COLITIS
     Dosage: 1 MG/KG, QD
     Route: 048
     Dates: start: 20151223
  4. PREDNISOLONE. [Suspect]
     Active Substance: PREDNISOLONE
     Dosage: 0.5?0.6MG/KG/DAY
     Dates: start: 20160314
  5. PREDNISOLONE. [Suspect]
     Active Substance: PREDNISOLONE
     Dosage: 0.2?0.3MG/KG/DAY
     Dates: start: 20160530, end: 20161014
  6. AMPICILLIN, SULBACTAM [Concomitant]
     Active Substance: AMPICILLIN SODIUM\SULBACTAM SODIUM
     Indication: NECROTISING COLITIS
     Dosage: UNK

REACTIONS (3)
  - Therapeutic response decreased [Unknown]
  - Eosinophilic colitis [Recovering/Resolving]
  - Drug resistance [Recovering/Resolving]
